FAERS Safety Report 4371960-2 (Version None)
Quarter: 2004Q2

REPORT INFORMATION
  Report Type: 
  Country: None (occurrence: None)
  Receive Date: 20040602
  Receipt Date: 20031001
  Transmission Date: 20050107
  Serious: Yes (Other)
  Sender: FDA-Public Use
  Company Number: US-JNJFOC-20040101631

PATIENT
  Age: 67 Year
  Sex: Female
  Weight: 73.0291 kg

DRUGS (8)
  1. PROPULSID [Suspect]
     Indication: GASTROOESOPHAGEAL REFLUX DISEASE
     Dosage: 10 MG, 4 IN 1 DAY
     Dates: start: 19940609, end: 20000414
  2. VASERETIC (VASERETIC) [Concomitant]
  3. SULINDAC [Concomitant]
  4. ZOCOR [Concomitant]
  5. NORVASC [Concomitant]
  6. ADALAT [Concomitant]
  7. MAXIDE (DYAZIDE) [Concomitant]
  8. CIMETIDINE [Concomitant]

REACTIONS (12)
  - CARDIAC DISORDER [None]
  - CARDIOMEGALY [None]
  - CORONARY ARTERY ATHEROSCLEROSIS [None]
  - DIABETES MELLITUS NON-INSULIN-DEPENDENT [None]
  - ELECTROCARDIOGRAM QT PROLONGED [None]
  - HEART RATE IRREGULAR [None]
  - HYPOKALAEMIA [None]
  - MAJOR DEPRESSION [None]
  - PALPITATIONS [None]
  - TORSADE DE POINTES [None]
  - VENTRICULAR FIBRILLATION [None]
  - VENTRICULAR TACHYCARDIA [None]
